FAERS Safety Report 9186286 (Version 2)
Quarter: 2013Q2

REPORT INFORMATION
  Report Type: Spontaneous
  Country: IT (occurrence: IT)
  Receive Date: 20130325
  Receipt Date: 20130410
  Transmission Date: 20140414
  Serious: Yes (Other)
  Sender: FDA-Public Use
  Company Number: IT-AMGEN-ITASP2013019222

PATIENT
  Age: 46 Year
  Sex: Female
  Weight: 70 kg

DRUGS (2)
  1. NPLATE [Suspect]
     Indication: THROMBOCYTOPENIA
     Dosage: 4 NG/KG, QWK
     Route: 058
     Dates: start: 20110909
  2. TACHIPIRINA [Concomitant]
     Dosage: 500 MG, UNK

REACTIONS (3)
  - Platelet count decreased [Recovered/Resolved]
  - Essential thrombocythaemia [Recovered/Resolved]
  - Platelet count increased [Unknown]
